FAERS Safety Report 12856006 (Version 3)
Quarter: 2016Q4

REPORT INFORMATION
  Report Type: Report from Study
  Country: US (occurrence: US)
  Receive Date: 20161018
  Receipt Date: 20161201
  Transmission Date: 20170207
  Serious: Yes (Other)
  Sender: FDA-Public Use
  Company Number: US-AMGEN-USASL2016140922

PATIENT
  Age: 64 Year
  Sex: Female
  Weight: 79.37 kg

DRUGS (17)
  1. CALCIUM [Concomitant]
     Active Substance: CALCIUM
     Dosage: 1100 MG, UNK
     Dates: start: 20140922
  2. DIFLUCAN [Concomitant]
     Active Substance: FLUCONAZOLE
     Dosage: 150 MG, UNK
     Route: 048
     Dates: start: 20150722, end: 20151123
  3. TEGRETOL [Concomitant]
     Active Substance: CARBAMAZEPINE
     Dosage: 200 MG, QD
     Route: 048
     Dates: start: 20160328
  4. KEPPRA [Concomitant]
     Active Substance: LEVETIRACETAM
     Indication: EPILEPSY
     Dosage: 500 MG, BID
     Route: 048
     Dates: start: 20160707, end: 20160707
  5. TAMOXIFEN [Concomitant]
     Active Substance: TAMOXIFEN
     Indication: BREAST CANCER
     Dosage: 20 MG, QD
     Route: 048
  6. DOXYCYCLINE HYCLATE. [Concomitant]
     Active Substance: DOXYCYCLINE HYCLATE
     Dosage: 50 MG, QD
     Route: 048
     Dates: start: 20150722, end: 20151123
  7. TEGRETOL [Concomitant]
     Active Substance: CARBAMAZEPINE
     Indication: EPILEPSY
     Dosage: 200 MG, TID
     Route: 048
     Dates: start: 20150416, end: 20160328
  8. KEPPRA [Concomitant]
     Active Substance: LEVETIRACETAM
     Dosage: 250 MG, BID
     Dates: start: 20160707, end: 20160801
  9. VIMPAT [Concomitant]
     Active Substance: LACOSAMIDE
     Dosage: 100 MG, BID
     Route: 048
     Dates: start: 20151123, end: 20151217
  10. PROLIA [Suspect]
     Active Substance: DENOSUMAB
     Indication: OSTEOPOROSIS POSTMENOPAUSAL
     Dosage: 60 MG, Q6MO
     Route: 058
     Dates: start: 20131029
  11. VITAMIN D3 [Concomitant]
     Active Substance: CHOLECALCIFEROL
     Dosage: 1400 IU, QD
     Dates: start: 20140922
  12. ANASTROZOLE. [Concomitant]
     Active Substance: ANASTROZOLE
     Indication: BREAST CANCER
     Dosage: 1 MG, QD
     Route: 048
     Dates: start: 20140922, end: 20160328
  13. FISH OIL [Concomitant]
     Active Substance: FISH OIL
     Dosage: 1000 MG, QD
     Route: 048
     Dates: start: 20150525, end: 20160328
  14. DEXILANT [Concomitant]
     Active Substance: DEXLANSOPRAZOLE
     Indication: ABDOMINAL PAIN UPPER
     Dosage: 60 MG, QD
     Route: 048
     Dates: start: 20160502, end: 20160707
  15. ALENDRONATE [Concomitant]
     Active Substance: ALENDRONATE SODIUM
     Dosage: 70 MG, QWK
     Route: 048
  16. PANTOPRAZOLE SODIUM. [Concomitant]
     Active Substance: PANTOPRAZOLE SODIUM
     Dosage: 40 MG, QD
     Route: 048
  17. INFLUENZA VACCINE [Concomitant]
     Active Substance: INFLUENZA VIRUS VACCINE
     Dosage: UNK
     Dates: start: 20151031

REACTIONS (23)
  - Headache [Unknown]
  - Vulvovaginal pruritus [Unknown]
  - Abdominal pain [Unknown]
  - Gastrooesophageal reflux disease [Recovering/Resolving]
  - Metastases to liver [Unknown]
  - Dyspepsia [Unknown]
  - Food allergy [Unknown]
  - Hypoaesthesia [Unknown]
  - Constipation [Unknown]
  - Rash [Unknown]
  - Appetite disorder [Unknown]
  - Deafness [Unknown]
  - Haemorrhage [Unknown]
  - Granuloma annulare [Recovering/Resolving]
  - Chest pain [Recovering/Resolving]
  - Nausea [Unknown]
  - Abdominal pain upper [Unknown]
  - Seizure [Unknown]
  - Vulvovaginal burning sensation [Unknown]
  - Arthralgia [Unknown]
  - Erythema [Unknown]
  - Cataract operation [Unknown]
  - Abdominal distension [Unknown]

NARRATIVE: CASE EVENT DATE: 20140922
